FAERS Safety Report 15203133 (Version 2)
Quarter: 2018Q3

REPORT INFORMATION
  Report Type: Report from Study
  Country: GB (occurrence: DE)
  Receive Date: 20180726
  Receipt Date: 20180919
  Transmission Date: 20181010
  Serious: Yes (Hospitalization, Other)
  Sender: FDA-Public Use
  Company Number: GB-MYLANLABS-2018M1053937

PATIENT
  Age: 79 Year
  Sex: Female
  Weight: 67 kg

DRUGS (34)
  1. AMLODIPINE [Suspect]
     Active Substance: AMLODIPINE BESYLATE
     Indication: CORONARY ARTERY DISEASE
     Dosage: 5 MG, QD, 5 MG (DAILY DOSE), , ORAL
     Route: 048
     Dates: end: 20000220
  2. AMLODIPINE [Suspect]
     Active Substance: AMLODIPINE BESYLATE
     Dosage: UNK UNK, QD
     Route: 048
     Dates: start: 20000130, end: 20000227
  3. RANITIC [Suspect]
     Active Substance: RANITIDINE HYDROCHLORIDE
     Indication: GASTRIC ULCER
     Dosage: 300 MG, QD, 300 MG (DAILY DOSE), , ORAL
     Route: 048
     Dates: start: 20000218, end: 20000224
  4. TRAMAL [Suspect]
     Active Substance: TRAMADOL
     Dosage: UNK (DOSE UNIT: 20 DROP)
     Route: 048
  5. ISOSORBIDE DINITRATE. [Suspect]
     Active Substance: ISOSORBIDE DINITRATE
     Dosage: 20 MG, QD
     Route: 048
     Dates: start: 20000218, end: 20000224
  6. ZANTAC [Suspect]
     Active Substance: RANITIDINE HYDROCHLORIDE
     Indication: GASTRIC ULCER
     Dosage: UNK
     Route: 048
  7. LASIX [Suspect]
     Active Substance: FUROSEMIDE
     Indication: CORONARY ARTERY DISEASE
     Dosage: 40 MG, QD
     Route: 048
     Dates: start: 20000225, end: 20000227
  8. TRAMAL [Suspect]
     Active Substance: TRAMADOL
     Indication: PAIN
     Dosage: UNK
     Route: 048
     Dates: start: 20000219, end: 20000223
  9. FURORESE                           /00032601/ [Suspect]
     Active Substance: FUROSEMIDE
     Dosage: 40 MG, QD
     Route: 048
     Dates: start: 20000130, end: 20000218
  10. DIAZEPAM. [Suspect]
     Active Substance: DIAZEPAM
     Dosage: 5 MG, QD
     Route: 042
     Dates: start: 20000218, end: 20000218
  11. CORANGIN [Suspect]
     Active Substance: ISOSORBIDE MONONITRATE
     Indication: CORONARY ARTERY DISEASE
     Dosage: 1 DF, QD, 1 DF (DAILY DOSE), , ORAL
     Route: 048
     Dates: start: 20000218, end: 20000224
  12. EUSAPRIM                           /00086101/ [Suspect]
     Active Substance: SULFAMETHOXAZOLE\TRIMETHOPRIM
     Indication: CYSTITIS
     Dosage: 2 DF, QD, 2 DF (DAILY DOSE), , ORAL
     Route: 048
     Dates: start: 20000226, end: 20000227
  13. ZANTAC [Suspect]
     Active Substance: RANITIDINE HYDROCHLORIDE
     Indication: PROPHYLAXIS
     Dosage: 300 MG, QD
     Route: 048
     Dates: start: 20000225, end: 20000227
  14. PARACETAMOL [Concomitant]
     Active Substance: ACETAMINOPHEN
     Dosage: 1 DF, QD
     Route: 054
     Dates: start: 20000226, end: 20000226
  15. ISMO [Suspect]
     Active Substance: ISOSORBIDE MONONITRATE
     Indication: CORONARY ARTERY DISEASE
     Dosage: UNK
     Route: 048
  16. PHENHYDAN                          /00017401/ [Suspect]
     Active Substance: PHENYTOIN
     Indication: SEIZURE
     Dosage: UNK
     Route: 042
     Dates: start: 20000225, end: 20000226
  17. FURORESE                           /00032601/ [Suspect]
     Active Substance: FUROSEMIDE
     Dosage: UNK
     Route: 048
  18. RANITIC [Suspect]
     Active Substance: RANITIDINE HYDROCHLORIDE
     Indication: PROPHYLAXIS
  19. RIVOTRIL [Suspect]
     Active Substance: CLONAZEPAM
     Indication: SEIZURE
     Dosage: 1 MG, QD
     Route: 042
     Dates: start: 20000224, end: 20000224
  20. ISMO [Suspect]
     Active Substance: ISOSORBIDE MONONITRATE
     Dosage: 20 MG, QD
     Route: 048
     Dates: start: 20000225, end: 20000227
  21. PHENHYDAN                          /00017401/ [Suspect]
     Active Substance: PHENYTOIN
     Dosage: UNK
     Route: 048
     Dates: start: 20000226, end: 20000227
  22. DIAZEPAM. [Suspect]
     Active Substance: DIAZEPAM
     Indication: SEIZURE
     Dosage: 5 MG, QD
     Route: 042
     Dates: start: 20000225, end: 20000225
  23. ISOSORBIDE DINITRATE. [Suspect]
     Active Substance: ISOSORBIDE DINITRATE
     Indication: CORONARY ARTERY DISEASE
     Dosage: 1 DF, QD, 1 DF (DAILY DOSE), , ORAL
     Route: 048
     Dates: start: 20000130, end: 20000218
  24. TEGRETAL [Suspect]
     Active Substance: CARBAMAZEPINE
     Indication: SEIZURE
     Dosage: 600 MG, QD, 600 MG (DAILY DOSE), , ORAL
     Route: 048
     Dates: start: 20000125, end: 20000224
  25. AMLODIPINE [Suspect]
     Active Substance: AMLODIPINE BESYLATE
     Dosage: 5 MG, QD, 5 MG (DAILY DOSE), , ORAL
     Route: 048
  26. AMLODIPINE [Suspect]
     Active Substance: AMLODIPINE BESYLATE
     Dosage: 5 MG, QD
     Route: 048
     Dates: start: 20000130, end: 20000220
  27. FURORESE                           /00032601/ [Suspect]
     Active Substance: FUROSEMIDE
     Indication: OEDEMA
     Dosage: UNK
     Route: 048
     Dates: start: 20000218, end: 20000224
  28. PHENHYDAN                          /00017401/ [Suspect]
     Active Substance: PHENYTOIN
     Dosage: 100 MG, UNK
     Route: 048
  29. DIAZEPAM. [Suspect]
     Active Substance: DIAZEPAM
     Dosage: 5 MG, QD
     Route: 042
     Dates: start: 20000220, end: 20000220
  30. EUSAPRIM                           /00086101/ [Suspect]
     Active Substance: SULFAMETHOXAZOLE\TRIMETHOPRIM
     Indication: URINARY TRACT INFECTION
  31. FUROSEMID                          /00032601/ [Suspect]
     Active Substance: FUROSEMIDE
     Indication: OEDEMA
     Dosage: 40 MG, QD, 40 MG (DAILY DOSE), , ORAL
     Route: 048
     Dates: start: 20000218, end: 20000224
  32. PARACETAMOL [Concomitant]
     Active Substance: ACETAMINOPHEN
     Indication: PAIN
     Dosage: 1000 MG, QD
     Route: 054
     Dates: start: 20000226, end: 20000226
  33. LUMINAL                            /00023201/ [Suspect]
     Active Substance: PHENOBARBITAL SODIUM
     Indication: SEIZURE
     Dosage: UNK
     Route: 030
  34. ASPIRIN                            /00002701/ [Suspect]
     Active Substance: ASPIRIN
     Indication: CORONARY ARTERY DISEASE
     Dosage: 100 MG, QD, 100 MG (DAILY DOSE), , ORAL
     Route: 048
     Dates: start: 20000130, end: 20000227

REACTIONS (6)
  - Conjunctivitis [Recovered/Resolved]
  - Rash erythematous [Recovered/Resolved]
  - Genital erosion [Recovered/Resolved]
  - Mouth ulceration [Recovered/Resolved]
  - Stevens-Johnson syndrome [Recovered/Resolved]
  - Pruritus [Recovered/Resolved]

NARRATIVE: CASE EVENT DATE: 20000227
